FAERS Safety Report 6605189-1 (Version None)
Quarter: 2010Q1

REPORT INFORMATION
  Report Type: 
  Country: None (occurrence: None)
  Receive Date: 20100226
  Receipt Date: 20100218
  Transmission Date: 20100710
  Serious: Yes (Hospitalization)
  Sender: FDA-Public Use
  Company Number: DE-WYE-G05588710

PATIENT
  Age: 44 Year
  Sex: Female

DRUGS (9)
  1. TREVILOR RETARD [Suspect]
     Indication: DEPRESSION
     Dosage: 75 - 150 MG DAILY
     Route: 048
     Dates: start: 20090918, end: 20091001
  2. TREVILOR RETARD [Suspect]
     Dosage: 225 MG DAILY
     Route: 048
     Dates: start: 20091002, end: 20091012
  3. TREVILOR RETARD [Suspect]
     Dosage: 150 - 75 MG DAILY
     Route: 048
     Dates: start: 20091013, end: 20091019
  4. TRUXAL [Concomitant]
     Dosage: UNKNOWN
     Route: 048
     Dates: end: 20090101
  5. TRUXAL [Concomitant]
     Dosage: UNKNOWN
     Route: 048
     Dates: start: 20091001
  6. MYDOCALM [Concomitant]
     Route: 048
     Dates: start: 20090912, end: 20091031
  7. IBUPROFEN [Concomitant]
     Dosage: 1500 - 2400 MG DAILY
     Route: 048
     Dates: start: 20090912, end: 20091031
  8. PAROXETINE HCL [Suspect]
     Indication: DEPRESSION
     Route: 048
     Dates: start: 20090906, end: 20090917
  9. TRAMADOL HCL [Concomitant]
     Dosage: 100 - 300 MG DAILY
     Route: 048
     Dates: start: 20090912, end: 20091031

REACTIONS (3)
  - CONDITION AGGRAVATED [None]
  - DRUG INTERACTION [None]
  - SUICIDAL IDEATION [None]
